FAERS Safety Report 9451444 (Version 1)
Quarter: 2013Q3

REPORT INFORMATION
  Report Type: Spontaneous
  Country: FR (occurrence: FR)
  Receive Date: 20130809
  Receipt Date: 20130809
  Transmission Date: 20140515
  Serious: Yes (Other)
  Sender: FDA-Public Use
  Company Number: FR-B.I. PHARMACEUTICALS,INC./RIDGEFIELD-2013-FF-02073FF

PATIENT
  Sex: Male

DRUGS (3)
  1. SIFROL [Suspect]
     Indication: PARKINSON^S DISEASE
     Dosage: 2.1 MG
     Route: 048
     Dates: start: 2006, end: 201101
  2. SIFROL [Suspect]
     Dosage: 2.1 MG
     Route: 048
     Dates: start: 201101, end: 201303
  3. SIFROL [Suspect]
     Dosage: 1.05 MG
     Route: 048
     Dates: start: 201303

REACTIONS (5)
  - Hyperphagia [Not Recovered/Not Resolved]
  - Impulse-control disorder [Not Recovered/Not Resolved]
  - Dependence [Not Recovered/Not Resolved]
  - Compulsive shopping [Not Recovered/Not Resolved]
  - Hypersexuality [Not Recovered/Not Resolved]
